FAERS Safety Report 12649190 (Version 2)
Quarter: 2016Q4

REPORT INFORMATION
  Report Type: Other
  Country: BR (occurrence: BR)
  Receive Date: 20160812
  Receipt Date: 20161006
  Transmission Date: 20170207
  Serious: No
  Sender: FDA-Public Use
  Company Number: ALCN2016BR005610

PATIENT
  Age: 75 Year
  Sex: Male
  Weight: 80 kg

DRUGS (2)
  1. DUOTRAV BAC-FREE [Suspect]
     Active Substance: TIMOLOL\TRAVOPROST
     Indication: PRODUCT USED FOR UNKNOWN INDICATION
     Dosage: 1 GTT, QD (A DAY)
     Route: 047
  2. INSULIN [Concomitant]
     Active Substance: INSULIN NOS
     Indication: PRODUCT USED FOR UNKNOWN INDICATION
     Route: 065

REACTIONS (1)
  - Cataract operation [Unknown]
